FAERS Safety Report 16582894 (Version 2)
Quarter: 2019Q4

REPORT INFORMATION
  Report Type: Report from Study
  Country: None (occurrence: US)
  Receive Date: 20190717
  Receipt Date: 20191230
  Transmission Date: 20200122
  Serious: Yes (Hospitalization)
  Sender: FDA-Public Use
  Company Number: US-BIOVITRUM-2019US1946

PATIENT
  Sex: Male

DRUGS (1)
  1. KINERET [Suspect]
     Active Substance: ANAKINRA
     Indication: CROHN^S DISEASE
     Route: 058
     Dates: start: 20190531

REACTIONS (10)
  - Dizziness [Unknown]
  - Blood potassium decreased [Recovered/Resolved]
  - Nausea [Unknown]
  - Mass [Unknown]
  - Off label use [Unknown]
  - Nasopharyngitis [Unknown]
  - Injection site pain [Unknown]
  - Dehydration [Unknown]
  - Blood magnesium decreased [Recovered/Resolved]
  - Headache [Unknown]
